FAERS Safety Report 6596706-9 (Version None)
Quarter: 2010Q1

REPORT INFORMATION
  Report Type: 
  Country: None (occurrence: None)
  Receive Date: 20100223
  Receipt Date: 20100217
  Transmission Date: 20100710
  Serious: Yes (Other)
  Sender: FDA-Public Use
  Company Number: US-BRISTOL-MYERS SQUIBB COMPANY-14941421

PATIENT
  Age: 46 Year
  Sex: Female

DRUGS (17)
  1. ERBITUX [Suspect]
     Indication: COLORECTAL CANCER METASTATIC
     Dosage: 1STDOSE-400MG/M2,THEN 250MG/M2 QW.DOSE HELD AND STARTED AT REDUCED DOSE,AND THEN CONTN AT150MG/M2
     Route: 042
     Dates: start: 20091027
  2. FLUOROURACIL [Suspect]
     Indication: COLORECTAL CANCER METASTATIC
     Dosage: DOSE REDUCED FROM 28DEC2009
     Dates: start: 20091027
  3. FOLINIC ACID [Suspect]
     Indication: COLORECTAL CANCER METASTATIC
     Dates: start: 20091027
  4. OXALIPLATIN [Suspect]
     Indication: COLORECTAL CANCER METASTATIC
     Dates: start: 20091027
  5. METFORMIN HCL [Concomitant]
     Dosage: 1DF: 500(UNIT NOT SPECIFIED)
  6. LISINOPRIL AND HYDROCHLOROTHIAZIDE [Concomitant]
     Dosage: 1DF: 20/125
  7. ZOCOR [Concomitant]
     Dosage: 1DF: 20(UNIT NOT SPECIFIED)
  8. PROTONIX [Concomitant]
     Dosage: 1DF: 40(UNIT NOT SPECIFIED)
  9. ATENOLOL [Concomitant]
     Dosage: 1DF: 10(UNIT NOT SPECIFIED)
  10. ZOFRAN [Concomitant]
  11. ATIVAN [Concomitant]
  12. DOXYCYCLINE [Concomitant]
  13. ZANTAC [Concomitant]
  14. PEPCID [Concomitant]
  15. POTASSIUM CHLORIDE [Concomitant]
  16. DILTIAZEM HCL [Concomitant]
     Route: 061
     Dates: start: 20091214
  17. MICROLAX [Concomitant]

REACTIONS (3)
  - ANAL FISSURE [None]
  - DERMATITIS ACNEIFORM [None]
  - STOMATITIS [None]
